FAERS Safety Report 19131682 (Version 2)
Quarter: 2021Q2

REPORT INFORMATION
  Report Type: Report from Study
  Country: IL (occurrence: IL)
  Receive Date: 20210413
  Receipt Date: 20210603
  Transmission Date: 20210717
  Serious: Yes (Hospitalization, Other)
  Sender: FDA-Public Use
  Company Number: NVSC2021IL068299

PATIENT
  Age: 74 Year
  Sex: Female
  Weight: 55 kg

DRUGS (4)
  1. DABRAFENIB [Suspect]
     Active Substance: DABRAFENIB
     Indication: BRAF GENE MUTATION
     Dosage: UNK
     Route: 065
  2. TRAMETINIB [Suspect]
     Active Substance: TRAMETINIB
     Indication: BRAF GENE MUTATION
  3. TRAMETINIB [Suspect]
     Active Substance: TRAMETINIB
     Indication: HEAD AND NECK CANCER
     Dosage: 2 MG, QD
     Route: 050
     Dates: start: 20210212, end: 20210302
  4. DABRAFENIB [Suspect]
     Active Substance: DABRAFENIB
     Indication: HEAD AND NECK CANCER
     Dosage: 150 MG, BID
     Route: 050
     Dates: start: 20210212, end: 20210302

REACTIONS (5)
  - Increased bronchial secretion [Unknown]
  - Upper respiratory tract infection [Unknown]
  - Pyrexia [Unknown]
  - Asthenia [Unknown]
  - Urinary tract infection [Unknown]

NARRATIVE: CASE EVENT DATE: 20210301
